FAERS Safety Report 8308081-X (Version None)
Quarter: 2012Q2

REPORT INFORMATION
  Report Type: 
  Country: None (occurrence: None)
  Receive Date: 20120420
  Receipt Date: 20120409
  Transmission Date: 20120825
  Serious: Yes (Death, Other)
  Sender: FDA-Public Use
  Company Number: 2012P1013131

PATIENT
  Age: 83 Year
  Sex: Male

DRUGS (5)
  1. UNSPECIFIED DIURETICS [Concomitant]
  2. NALOXONE [Suspect]
     Indication: ACUTE RESPIRATORY DISTRESS SYNDROME
     Dosage: 04. MG;X3
  3. UNSPECIFIED ANTIBIOTICS [Concomitant]
  4. FENTANYL CITRATE [Suspect]
     Indication: DYSPNOEA
     Dosage: 10 UG;QH ; 2 UG;Q15MIN
  5. FENTANYL CITRATE [Suspect]
     Indication: AGITATION
     Dosage: 10 UG;QH ; 2 UG;Q15MIN

REACTIONS (7)
  - BLOOD PRESSURE DECREASED [None]
  - STARING [None]
  - HEART RATE IRREGULAR [None]
  - PULSE ABNORMAL [None]
  - DRUG INEFFECTIVE [None]
  - UNRESPONSIVE TO STIMULI [None]
  - HYPOPNOEA [None]
